FAERS Safety Report 12882569 (Version 3)
Quarter: 2017Q1

REPORT INFORMATION
  Report Type: Spontaneous
  Country: US (occurrence: US)
  Receive Date: 20161025
  Receipt Date: 20170124
  Transmission Date: 20170428
  Serious: No
  Sender: FDA-Public Use
  Company Number: US-PFIZER INC-2016191958

PATIENT
  Age: 61 Year
  Sex: Female
  Weight: 68 kg

DRUGS (3)
  1. SUTENT [Suspect]
     Active Substance: SUNITINIB MALATE
     Indication: CHEMOTHERAPEUTIC DRUG LEVEL
  2. SUTENT [Suspect]
     Active Substance: SUNITINIB MALATE
     Indication: NEOPLASM MALIGNANT
  3. SUTENT [Suspect]
     Active Substance: SUNITINIB MALATE
     Indication: PANCREATIC NEUROENDOCRINE TUMOUR
     Dosage: 37.5 MG, 1X/DAY (3 CAPSULES BY MOUTH 1 TIME PER DAY, 12.5 MG X 3)
     Route: 048
     Dates: start: 201408

REACTIONS (2)
  - Foot fracture [Recovered/Resolved]
  - Soft tissue injury [Recovered/Resolved]

NARRATIVE: CASE EVENT DATE: 20160712
